FAERS Safety Report 4998011-0 (Version None)
Quarter: 2006Q2

REPORT INFORMATION
  Report Type: 
  Country: None (occurrence: None)
  Receive Date: 20060508
  Receipt Date: 20060501
  Transmission Date: 20061013
  Serious: Yes (Other)
  Sender: FDA-Public Use
  Company Number: 2006-05-0032

PATIENT
  Age: 32 Year
  Sex: Male

DRUGS (1)
  1. NASONEX [Suspect]
     Indication: RHINITIS ALLERGIC
     Dosage: 50 MCG NASAL SPRAY

REACTIONS (2)
  - CATARACT [None]
  - VISION BLURRED [None]
